FAERS Safety Report 18264033 (Version 6)
Quarter: 2021Q4

REPORT INFORMATION
  Report Type: Spontaneous
  Country: US (occurrence: US)
  Receive Date: 20200914
  Receipt Date: 20211007
  Transmission Date: 20220303
  Serious: Yes (Other)
  Sender: FDA-Public Use
  Company Number: US-PFIZER INC-2020340093

PATIENT
  Age: 40 Year
  Sex: Male
  Weight: 58.97 kg

DRUGS (4)
  1. SOMATROPIN [Suspect]
     Active Substance: SOMATROPIN
     Indication: Addison^s disease
     Dosage: UNK
  2. SOMATROPIN [Suspect]
     Active Substance: SOMATROPIN
     Indication: Multiple sclerosis
  3. GENOTROPIN [Suspect]
     Active Substance: SOMATROPIN
     Indication: Addison^s disease
     Dosage: 0.4 MG
     Dates: start: 202007
  4. GENOTROPIN [Suspect]
     Active Substance: SOMATROPIN
     Indication: Multiple sclerosis

REACTIONS (5)
  - Dysuria [Unknown]
  - Off label use [Unknown]
  - Product use in unapproved indication [Unknown]
  - Device leakage [Unknown]
  - Drug dose omission by device [Unknown]
